FAERS Safety Report 7409040-1 (Version None)
Quarter: 2011Q1

REPORT INFORMATION
  Report Type: 
  Country: None (occurrence: None)
  Receive Date: 20110301
  Receipt Date: 20101207
  Transmission Date: 20110831
  Serious: Yes (Death)
  Sender: FDA-Public Use
  Company Number: RB-19150-2010

PATIENT
  Age: 37 Year
  Sex: Female

DRUGS (1)
  1. SUBOXONE [Suspect]
     Indication: PRODUCT USED FOR UNKNOWN INDICATION
     Dosage: (NASAL)
     Route: 045

REACTIONS (3)
  - INTENTIONAL DRUG MISUSE [None]
  - OVERDOSE [None]
  - SUBSTANCE ABUSE [None]
